FAERS Safety Report 20057780 (Version 1)
Quarter: 2021Q4

REPORT INFORMATION
  Report Type: Spontaneous
  Country: NL (occurrence: NL)
  Receive Date: 20211111
  Receipt Date: 20211111
  Transmission Date: 20220303
  Serious: Yes (Other)
  Sender: FDA-Public Use
  Company Number: None

PATIENT
  Age: 66 Year
  Sex: Female

DRUGS (6)
  1. LOSARTAN [Suspect]
     Active Substance: LOSARTAN
     Indication: Hypertension
     Dosage: 100 MILLIGRAM DAILY; 1 X PER DAY 1 PIECE,THERAPY END DATE:ASKU
     Dates: start: 202003
  2. LEVOTHYROXINE  / THYRAX DUOTAB [Concomitant]
     Dosage: 25 UG (MICROGRAM)THERAPY START DATE:THERAPY END DATE:ASKU
  3. THIAMAZOL/ STRUMAZOL [Concomitant]
     Dosage: 30 MG (MILLIGRAM),THERAPY START DATE :THERAPY END DATE:ASKU
  4. APIXABAN  / ELIQUIS [Concomitant]
     Dosage: 5 MG (MILLIGRAM),THERAPY START DATE :THERAPY END DATE:ASKU
  5. METOPROLOLMGA / Brand name not specified [Concomitant]
     Dosage: 50 MG (MILLIGRAM),THERAPY START DATE :THERAPY END DATE:ASKU
  6. LEVOTHYROXINE / THYRAX DUOTAB [Concomitant]
     Dosage: 100 UG (MICROGRAM),THERAPY START DATE :THERAPY END DATE:ASKU

REACTIONS (1)
  - Breast cancer [Recovering/Resolving]

NARRATIVE: CASE EVENT DATE: 20210715
